FAERS Safety Report 10382728 (Version 1)
Quarter: 2014Q3

REPORT INFORMATION
  Report Type: Spontaneous
  Country: US (occurrence: US)
  Receive Date: 20140813
  Receipt Date: 20140813
  Transmission Date: 20150326
  Serious: Yes (Hospitalization)
  Sender: FDA-Public Use
  Company Number: US-B.I. PHARMACEUTICALS,INC./RIDGEFIELD-2014-BI-36873BP

PATIENT
  Age: 75 Year
  Sex: Female

DRUGS (13)
  1. PRADAXA [Suspect]
     Active Substance: DABIGATRAN ETEXILATE MESYLATE
     Indication: ATRIAL FIBRILLATION
     Dosage: 150 MG
     Route: 048
     Dates: end: 20130106
  2. AMIODARONE [Concomitant]
     Active Substance: AMIODARONE
     Route: 048
  3. LOPRESSOR [Concomitant]
     Active Substance: METOPROLOL TARTRATE
     Dosage: 50 MG
     Route: 048
  4. LEVOTHROID [Concomitant]
     Active Substance: LEVOTHYROXINE SODIUM
     Dosage: 50 MCG
     Route: 048
  5. SYMBICORT [Concomitant]
     Active Substance: BUDESONIDE\FORMOTEROL FUMARATE DIHYDRATE
     Dosage: DOSE PER APPLICATION: 80/4.5, 1 PUFF
     Route: 055
  6. IBUPROFEN. [Concomitant]
     Active Substance: IBUPROFEN
     Route: 065
  7. MAGNESIUM [Concomitant]
     Active Substance: MAGNESIUM
     Dosage: 168 MG
     Route: 048
  8. LASIX [Concomitant]
     Active Substance: FUROSEMIDE
     Dosage: 40 MG
     Route: 048
  9. POTASSIUM [Concomitant]
     Active Substance: POTASSIUM
     Dosage: 20 MEQ
     Route: 048
  10. FOLVITE [Concomitant]
     Active Substance: FOLIC ACID
     Dosage: 1 MG
     Route: 048
  11. MUCINEX [Concomitant]
     Active Substance: GUAIFENESIN
     Dosage: 1200 MG
     Route: 048
  12. ALLOPURINOL. [Concomitant]
     Active Substance: ALLOPURINOL
     Dosage: 300 MG
     Route: 048
  13. OMNICEF [Concomitant]
     Active Substance: CEFDINIR
     Dosage: 300 MG
     Route: 048

REACTIONS (4)
  - Haemorrhagic anaemia [Unknown]
  - Coagulopathy [Unknown]
  - Renal failure acute [Unknown]
  - Upper gastrointestinal haemorrhage [Unknown]

NARRATIVE: CASE EVENT DATE: 201212
